FAERS Safety Report 6825551-1 (Version None)
Quarter: 2010Q3

REPORT INFORMATION
  Report Type: 
  Country: None (occurrence: None)
  Receive Date: 20100708
  Receipt Date: 20070305
  Transmission Date: 20110219
  Serious: No
  Sender: FDA-Public Use
  Company Number: US-PFIZER INC-2006151960

PATIENT
  Sex: Female
  Weight: 77.11 kg

DRUGS (8)
  1. CHANTIX [Suspect]
     Indication: SMOKING CESSATION THERAPY
     Dates: start: 20060901
  2. WARFARIN SODIUM [Concomitant]
     Indication: ANTICOAGULANT THERAPY
  3. FUROSEMIDE [Concomitant]
  4. COZAAR [Concomitant]
     Indication: HYPERTENSION
  5. LANOXIN [Concomitant]
     Indication: CARDIAC DISORDER
  6. LEVOXYL [Concomitant]
     Indication: THYROID DISORDER
  7. METOPROLOL [Concomitant]
     Indication: HYPERTENSION
  8. ADVAIR DISKUS 100/50 [Concomitant]
     Indication: ASTHMA

REACTIONS (3)
  - NAUSEA [None]
  - RETCHING [None]
  - VOMITING [None]
